FAERS Safety Report 4316161-9 (Version None)
Quarter: 2004Q1

REPORT INFORMATION
  Report Type: 
  Country: None (occurrence: None)
  Receive Date: 20040312
  Receipt Date: 20040304
  Transmission Date: 20041129
  Serious: Yes (Hospitalization)
  Sender: FDA-Public Use
  Company Number: PHBS2004CN03158

PATIENT
  Age: 73 Year
  Sex: Male
  Weight: 70 kg

DRUGS (1)
  1. VOLTAREN [Suspect]
     Indication: GOUT
     Dosage: 75 MG/DAY
     Route: 048
     Dates: start: 19930101

REACTIONS (3)
  - ANAEMIA [None]
  - MULTIPLE MYELOMA [None]
  - OESOPHAGEAL CARCINOMA [None]
